FAERS Safety Report 12245948 (Version 1)
Quarter: 2016Q2

REPORT INFORMATION
  Report Type: Spontaneous
  Country: ES (occurrence: None)
  Receive Date: 20160406
  Receipt Date: 20160406
  Transmission Date: 20160815
  Serious: Yes (Death)
  Sender: FDA-Public Use
  Company Number: ES-ALSI-201600065

PATIENT
  Age: 52 Year
  Sex: Male

DRUGS (1)
  1. MEDICAL AIR [Suspect]
     Active Substance: OXYGEN
     Indication: OXYGEN SUPPLEMENTATION
     Route: 055
     Dates: start: 20160315, end: 20160315

REACTIONS (4)
  - Product quality issue [None]
  - Underdose [None]
  - Cardiac arrest [None]
  - Device issue [None]

NARRATIVE: CASE EVENT DATE: 20160315
